FAERS Safety Report 8917942 (Version 1)
Quarter: 2012Q4

REPORT INFORMATION
  Report Type: 
  Country: US (occurrence: US)
  Receive Date: 20121120
  Receipt Date: 20121120
  Transmission Date: 20130627
  Serious: Yes (Life-Threatening)
  Sender: FDA-Public Use
  Company Number: CHPA2012US023827

PATIENT
  Age: 77 Year
  Sex: Male

DRUGS (1)
  1. BENEFIBER ORANGE POWDER [Suspect]
     Indication: CONSTIPATION
     Dosage: Unk, Unk
     Route: 048
     Dates: start: 201011, end: 201111

REACTIONS (2)
  - Cardiac arrest [Recovered/Resolved]
  - Off label use [Unknown]
